FAERS Safety Report 19800271 (Version 6)
Quarter: 2022Q4

REPORT INFORMATION
  Report Type: Report from Study
  Country: US (occurrence: US)
  Receive Date: 20210907
  Receipt Date: 20221122
  Transmission Date: 20230112
  Serious: Yes (Hospitalization, Other)
  Sender: FDA-Public Use
  Company Number: US-ABBVIE-21K-163-4066850-00

PATIENT
  Age: 72 Year
  Sex: Female
  Weight: 63.502 kg

DRUGS (5)
  1. HUMIRA [Suspect]
     Active Substance: ADALIMUMAB
     Indication: Rheumatoid arthritis
     Dosage: CITRATE FREE?FORM STRENGTH 40 MILLIGRAMS
     Route: 058
  2. HUMIRA [Suspect]
     Active Substance: ADALIMUMAB
  3. PFIZER-BIONTECH COVID-19 VACCINE [Concomitant]
     Active Substance: TOZINAMERAN
     Indication: COVID-19 immunisation
     Dosage: TIME INTERVAL: 1 TOTAL: THIRD DOSE OR BOOSTER DOSE
     Route: 030
     Dates: start: 20211006, end: 20211006
  4. PFIZER-BIONTECH COVID-19 VACCINE [Concomitant]
     Active Substance: TOZINAMERAN
     Indication: COVID-19 immunisation
     Dosage: TIME INTERVAL: 1 TOTAL: SECOND DOSE
     Route: 030
     Dates: start: 20210211, end: 20210211
  5. PFIZER-BIONTECH COVID-19 VACCINE [Concomitant]
     Active Substance: TOZINAMERAN
     Indication: COVID-19 immunisation
     Dosage: TIME INTERVAL: 1 TOTAL: FIRST DOSE
     Route: 030
     Dates: start: 20210122, end: 20210122

REACTIONS (15)
  - Corneal dystrophy [Recovering/Resolving]
  - Ocular discomfort [Not Recovered/Not Resolved]
  - White blood cell count increased [Unknown]
  - Blindness [Unknown]
  - Macular degeneration [Unknown]
  - Blindness unilateral [Not Recovered/Not Resolved]
  - Blindness unilateral [Not Recovered/Not Resolved]
  - Atrial fibrillation [Recovered/Resolved]
  - Glaucoma [Not Recovered/Not Resolved]
  - Lacrimation increased [Not Recovered/Not Resolved]
  - Tendonitis [Recovering/Resolving]
  - Spinal stenosis [Unknown]
  - Dry eye [Not Recovered/Not Resolved]
  - Hypertension [Recovering/Resolving]
  - Spinal stenosis [Unknown]

NARRATIVE: CASE EVENT DATE: 20091001
